FAERS Safety Report 21562682 (Version 1)
Quarter: 2022Q4

REPORT INFORMATION
  Report Type: Spontaneous
  Country: CN (occurrence: CN)
  Receive Date: 20221107
  Receipt Date: 20221107
  Transmission Date: 20230112
  Serious: Yes (Disabling)
  Sender: FDA-Public Use
  Company Number: CN-009507513-2211CHN000893

PATIENT
  Age: 1 Year
  Sex: Female
  Weight: 6.8 kg

DRUGS (1)
  1. CILASTATIN SODIUM\IMIPENEM [Suspect]
     Active Substance: CILASTATIN SODIUM\IMIPENEM
     Indication: Anti-infective therapy
     Dosage: 0.2 G, QID
     Route: 041
     Dates: start: 20221026, end: 20221027

REACTIONS (6)
  - Tremor [Recovering/Resolving]
  - Muscle twitching [Recovering/Resolving]
  - Trismus [Recovering/Resolving]
  - Musculoskeletal stiffness [Unknown]
  - Hyperhidrosis [Unknown]
  - Incorrect dose administered [Unknown]

NARRATIVE: CASE EVENT DATE: 20221026
